FAERS Safety Report 8274888-0 (Version None)
Quarter: 2012Q2

REPORT INFORMATION
  Report Type: 
  Country: None (occurrence: None)
  Receive Date: 20120411
  Receipt Date: 20120406
  Transmission Date: 20120825
  Serious: Yes (Hospitalization)
  Sender: FDA-Public Use
  Company Number: KR-B.I. PHARMACEUTICALS,INC./RIDGEFIELD-2012-CS-00453RK

PATIENT
  Age: 43 Year
  Sex: Male

DRUGS (4)
  1. ATROVENT [Suspect]
     Indication: RESPIRATORY DISORDER
     Dosage: 4 INHALATIONS
     Route: 055
     Dates: start: 20020101
  2. IRON SUPPLEMENT [Concomitant]
     Dates: start: 20120301
  3. MANGANESE SUPPLEMENT [Concomitant]
     Dates: start: 20120301
  4. MAGNESIUM SUPPLEMENT [Concomitant]
     Dates: start: 20120301

REACTIONS (2)
  - ABDOMINAL PAIN [None]
  - ABDOMINAL PAIN UPPER [None]
